FAERS Safety Report 25677431 (Version 1)
Quarter: 2025Q3

REPORT INFORMATION
  Report Type: Spontaneous
  Country: EU (occurrence: EU)
  Receive Date: 20250813
  Receipt Date: 20250813
  Transmission Date: 20251020
  Serious: Yes (Other)
  Sender: BIOVITRUM
  Company Number: EU-BIOVITRUM-2025-FR-011015

PATIENT

DRUGS (2)
  1. KINERET [Suspect]
     Active Substance: ANAKINRA
     Indication: Product used for unknown indication
  2. CEFEPIME [Suspect]
     Active Substance: CEFEPIME HYDROCHLORIDE
     Indication: Product used for unknown indication

REACTIONS (27)
  - Diabetes mellitus [Recovered/Resolved]
  - Myopathy [Recovered/Resolved]
  - Haematoma [Recovered/Resolved]
  - Headache [Recovered/Resolved]
  - Blood glucose increased [Recovered/Resolved]
  - Oedema peripheral [Unknown]
  - Weight increased [Unknown]
  - Nasopharyngitis [Recovered/Resolved]
  - Bronchitis [Recovered/Resolved]
  - Aortic dilatation [Unknown]
  - Tooth avulsion [Recovered/Resolved]
  - Odynophagia [Recovered/Resolved]
  - Dysphonia [Recovered/Resolved]
  - Refraction disorder [Recovered/Resolved]
  - Bowel movement irregularity [Unknown]
  - Basal cell carcinoma [Unknown]
  - Pyelonephritis [Recovered/Resolved]
  - Urinary tract infection bacterial [Recovered/Resolved]
  - Rash papular [Recovered/Resolved]
  - Normochromic normocytic anaemia [Unknown]
  - Cholestasis [Unknown]
  - Hypovitaminosis [Unknown]
  - Inflammation [Unknown]
  - COVID-19 [Recovered/Resolved]
  - Pruritus [Unknown]
  - Nosocomial infection [Recovered/Resolved]
  - Rash pruritic [Recovered/Resolved]

NARRATIVE: CASE EVENT DATE: 20190114
